FAERS Safety Report 9410939 (Version 1)
Quarter: 2013Q3

REPORT INFORMATION
  Report Type: Spontaneous
  Country: US (occurrence: US)
  Receive Date: 20130719
  Receipt Date: 20130719
  Transmission Date: 20140515
  Serious: No
  Sender: FDA-Public Use
  Company Number: US-PFIZER INC-2013209231

PATIENT
  Age: 47 Year
  Sex: Female
  Weight: 57.14 kg

DRUGS (2)
  1. DEPO-PROVERA [Suspect]
     Indication: ADJUVANT THERAPY
     Dosage: UNK
  2. KEPPRA [Concomitant]
     Indication: CONVULSION
     Dosage: UNK

REACTIONS (3)
  - Pre-existing condition improved [Unknown]
  - Therapeutic response unexpected [Unknown]
  - Menstrual disorder [Unknown]
